FAERS Safety Report 9712681 (Version 2)
Quarter: 2013Q4

REPORT INFORMATION
  Report Type: Spontaneous
  Country: US (occurrence: US)
  Receive Date: 20131126
  Receipt Date: 20131126
  Transmission Date: 20140711
  Serious: No
  Sender: FDA-Public Use
  Company Number: US-BRISTOL-MYERS SQUIBB COMPANY-18896886

PATIENT
  Age: 65 Year
  Sex: Male
  Weight: 156.91 kg

DRUGS (13)
  1. BYDUREON [Suspect]
     Dates: start: 20121228
  2. ALLOPURINOL [Concomitant]
  3. ATENOLOL [Concomitant]
  4. ATENOLOL [Concomitant]
  5. ZETIA [Concomitant]
  6. LOSARTAN [Concomitant]
  7. DOXAZOSIN [Concomitant]
  8. GLIMEPIRIDE [Concomitant]
  9. LISINOPRIL [Concomitant]
  10. HYDROCHLOROTHIAZIDE [Concomitant]
  11. METFORMIN [Concomitant]
  12. JANUMET [Concomitant]
     Dosage: 1DF = 1000/50MG
  13. LIPITOR [Concomitant]

REACTIONS (6)
  - Urticaria [Unknown]
  - Injection site nodule [Unknown]
  - Rash generalised [Unknown]
  - Nodule [Unknown]
  - Injection site pruritus [Unknown]
  - Injection site induration [Unknown]
